FAERS Safety Report 10068636 (Version 1)
Quarter: 2014Q2

REPORT INFORMATION
  Report Type: Spontaneous
  Country: FR (occurrence: FR)
  Receive Date: 20140409
  Receipt Date: 20140409
  Transmission Date: 20141212
  Serious: Yes (Life-Threatening, Hospitalization)
  Sender: FDA-Public Use
  Company Number: FR-GLAXOSMITHKLINE-B0981203A

PATIENT
  Age: 75 Year
  Sex: Female

DRUGS (10)
  1. ARIXTRA [Suspect]
     Indication: THROMBOPHLEBITIS
     Dosage: 7.5MG PER DAY
     Route: 058
     Dates: start: 20140211, end: 20140215
  2. KARDEGIC [Suspect]
     Indication: THROMBOSIS PROPHYLAXIS
     Dosage: 75MG PER DAY
     Route: 048
  3. ANAFRANIL [Concomitant]
     Dosage: 25MG PER DAY
     Route: 048
  4. LYSANXIA [Concomitant]
     Dosage: 15DROP PER DAY
     Route: 048
  5. STILNOX [Concomitant]
     Dosage: 10MG PER DAY
     Route: 048
  6. LEVOTHYROX [Concomitant]
     Dosage: 50MCG PER DAY
     Route: 048
  7. VALDOXAN [Concomitant]
     Dosage: 25MG PER DAY
     Route: 048
  8. QUETIAPINE [Concomitant]
     Dosage: 300MG PER DAY
     Route: 048
  9. DIAMICRON [Concomitant]
     Dosage: 60MG PER DAY
     Route: 048
  10. TAHOR [Concomitant]
     Dosage: 10MG PER DAY
     Route: 048

REACTIONS (2)
  - Subdural haematoma [Recovered/Resolved]
  - Reversible ischaemic neurological deficit [Recovered/Resolved]
